FAERS Safety Report 13900242 (Version 5)
Quarter: 2018Q3

REPORT INFORMATION
  Report Type: Spontaneous
  Country: US (occurrence: US)
  Receive Date: 20170824
  Receipt Date: 20180726
  Transmission Date: 20181010
  Serious: Yes (Hospitalization)
  Sender: FDA-Public Use
  Company Number: US-PFIZER INC-2017364480

PATIENT
  Age: 77 Year
  Sex: Female

DRUGS (22)
  1. ROXICODONE [Concomitant]
     Active Substance: OXYCODONE HYDROCHLORIDE
     Indication: PAIN
     Dosage: 5 MG, AS NEEDED (EVERY 6 HOURS)
     Route: 048
     Dates: start: 20170706, end: 20170905
  2. APRESOLINE HYDROCHLORIDE [Concomitant]
     Active Substance: HYDRALAZINE HYDROCHLORIDE
     Indication: CARDIAC FAILURE CHRONIC
     Dosage: 50 MG, 3X/DAY
     Route: 048
     Dates: start: 20170123, end: 20171012
  3. KAYEXALATE [Concomitant]
     Active Substance: SODIUM POLYSTYRENE SULFONATE
     Indication: HYPERKALAEMIA
     Dosage: 60 ML, 2X/DAY
     Route: 048
     Dates: start: 20170516, end: 20180102
  4. LASIX [Concomitant]
     Active Substance: FUROSEMIDE
     Dosage: 40 MG, DAILY
     Route: 048
     Dates: start: 20170425, end: 20171109
  5. APRESOLINE HYDROCHLORIDE [Concomitant]
     Active Substance: HYDRALAZINE HYDROCHLORIDE
     Indication: HYPERTENSION
  6. LYRICA [Suspect]
     Active Substance: PREGABALIN
     Indication: NEUROPATHY PERIPHERAL
     Dosage: 75 MG, 2X/DAY
     Route: 048
     Dates: start: 20170810, end: 20170816
  7. LYRICA [Suspect]
     Active Substance: PREGABALIN
     Indication: NERVE INJURY
     Dosage: 75 MG, 1X/DAY
     Route: 048
     Dates: start: 201708, end: 201708
  8. COREG [Concomitant]
     Active Substance: CARVEDILOL
     Indication: ARRHYTHMIA
     Dosage: 25 MG, 2X/DAY (EVERY 12 HOURS)
     Route: 048
     Dates: start: 20170123, end: 20171012
  9. ASPIRIN /00002701/ [Concomitant]
     Active Substance: ASPIRIN
     Dosage: UNK
  10. PERCOCET [Concomitant]
     Active Substance: ACETAMINOPHEN\OXYCODONE HYDROCHLORIDE
     Dosage: 1 DF, AS NEEDED [OXYCODONE HYDROCHLORIDE?5MG/ PARACETAMOL?325MG] (EVERY 4 HOURS)
     Route: 048
     Dates: start: 20170731, end: 20170907
  11. TRULICITY [Concomitant]
     Active Substance: DULAGLUTIDE
     Dosage: 0.5 ML, WEEKLY
     Route: 058
     Dates: start: 20170731, end: 20170914
  12. PLAVIX [Concomitant]
     Active Substance: CLOPIDOGREL BISULFATE
     Dosage: 75 MG, DAILY
     Route: 048
     Dates: start: 20170706, end: 20170823
  13. IMDUR [Concomitant]
     Active Substance: ISOSORBIDE MONONITRATE
     Indication: ANGINA PECTORIS
     Dosage: 60 MG, DAILY
     Route: 048
     Dates: start: 20170123, end: 20171012
  14. AMARYL [Concomitant]
     Active Substance: GLIMEPIRIDE
     Indication: TYPE 2 DIABETES MELLITUS
     Dosage: 1 MG, DAILY
     Route: 048
     Dates: start: 20170706, end: 20170914
  15. ASA EC [Concomitant]
     Active Substance: ASPIRIN
     Indication: MYOCARDIAL INFARCTION
     Dosage: 81 MG, DAILY
     Route: 048
     Dates: start: 20170123, end: 20171130
  16. COREG [Concomitant]
     Active Substance: CARVEDILOL
     Indication: HYPERTENSION
  17. KENALOG [Concomitant]
     Active Substance: TRIAMCINOLONE ACETONIDE
     Dosage: UNK, 2X/DAY
     Route: 061
     Dates: start: 20170605, end: 20180102
  18. LYRICA [Suspect]
     Active Substance: PREGABALIN
     Indication: DIABETIC NEUROPATHY
     Dosage: UNK, 2X/DAY
     Route: 048
     Dates: start: 20170731, end: 20170817
  19. ALBUTEROL. [Concomitant]
     Active Substance: ALBUTEROL
     Dosage: 3 ML, UNK (INHALE 3 ML AS DIRECTED EVERY 4 HOURS WHILE AWAKE)
     Route: 055
     Dates: start: 20161215, end: 20171109
  20. COREG [Concomitant]
     Active Substance: CARVEDILOL
     Indication: CARDIAC FAILURE CHRONIC
  21. HYDRALAZINE [Concomitant]
     Active Substance: HYDRALAZINE HYDROCHLORIDE
     Dosage: UNK
  22. PROVENTIL [Concomitant]
     Active Substance: ALBUTEROL
     Dosage: 3 ML, UNK (EVERY 4 HOURS WHILE AWAKE)
     Route: 055
     Dates: start: 20161215, end: 20171109

REACTIONS (23)
  - Nausea [Not Recovered/Not Resolved]
  - Dehydration [Unknown]
  - Fall [Recovered/Resolved]
  - Intentional product use issue [Unknown]
  - Head injury [Unknown]
  - Eye pain [Unknown]
  - Feeling jittery [Recovered/Resolved]
  - Dizziness [Unknown]
  - Movement disorder [Unknown]
  - Haematoma [Unknown]
  - Nervousness [Recovered/Resolved]
  - Acute kidney injury [Unknown]
  - Somnolence [Unknown]
  - Face injury [Unknown]
  - Metabolic acidosis [Unknown]
  - Mass [Not Recovered/Not Resolved]
  - Syncope [Recovered/Resolved]
  - Vision blurred [Unknown]
  - Condition aggravated [Unknown]
  - Ecchymosis [Unknown]
  - Toxicity to various agents [Unknown]
  - Feeling abnormal [Unknown]
  - Balance disorder [Unknown]

NARRATIVE: CASE EVENT DATE: 20170810
